FAERS Safety Report 11230242 (Version 1)
Quarter: 2015Q2

REPORT INFORMATION
  Report Type: Spontaneous
  Country: AU (occurrence: None)
  Receive Date: 20150629
  Receipt Date: 20150629
  Transmission Date: 20150821
  Serious: Yes (Congenital Anomaly)
  Sender: FDA-Public Use
  Company Number: AU-2015VAL000399

PATIENT

DRUGS (1)
  1. CARBAMAZEPINE (CARBAMAZEPINE) UNKNOWN [Suspect]
     Active Substance: CARBAMAZEPINE
     Indication: MATERNAL EXPOSURE DURING PREGNANCY
     Dosage: UNK, TRANSPLACENTAL
     Route: 064

REACTIONS (2)
  - Synostosis [None]
  - Maternal drugs affecting foetus [None]
